FAERS Safety Report 21454625 (Version 2)
Quarter: 2022Q4

REPORT INFORMATION
  Report Type: Spontaneous
  Country: US (occurrence: US)
  Receive Date: 20221013
  Receipt Date: 20221020
  Transmission Date: 20230113
  Serious: Yes (Hospitalization)
  Sender: FDA-Public Use
  Company Number: US-BRISTOL-MYERS SQUIBB COMPANY-2022-120745

PATIENT
  Age: 39 Year
  Sex: Male

DRUGS (1)
  1. REVLIMID [Suspect]
     Active Substance: LENALIDOMIDE
     Indication: Plasma cell myeloma
     Dosage: FREQUENCY: DAILY X 14 DAYS, EVERY 21 DAYS
     Route: 048
     Dates: start: 20221004

REACTIONS (5)
  - Gait disturbance [Recovering/Resolving]
  - Burning sensation [Not Recovered/Not Resolved]
  - Hiccups [Not Recovered/Not Resolved]
  - Back pain [Recovering/Resolving]
  - Off label use [Unknown]

NARRATIVE: CASE EVENT DATE: 20221015
